FAERS Safety Report 9547086 (Version 1)
Quarter: 2013Q3

REPORT INFORMATION
  Report Type: Report from Study
  Country: BR (occurrence: BR)
  Receive Date: 20130924
  Receipt Date: 20130924
  Transmission Date: 20140515
  Serious: Yes (Other)
  Sender: FDA-Public Use
  Company Number: PHHY2013BR105158

PATIENT
  Age: 65 Year
  Sex: Male

DRUGS (5)
  1. FORADIL [Suspect]
     Dosage: 12 UG, BID
  2. GALVUS [Concomitant]
     Indication: TYPE 2 DIABETES MELLITUS
  3. METFORMIN [Concomitant]
     Indication: TYPE 2 DIABETES MELLITUS
  4. AZUKON [Concomitant]
     Indication: TYPE 2 DIABETES MELLITUS
  5. INDACATEROL [Concomitant]
     Dosage: 150 UG, MID
     Dates: start: 201108

REACTIONS (3)
  - Pharyngeal cancer [Unknown]
  - Exercise tolerance decreased [Recovering/Resolving]
  - Emphysema [Unknown]
